FAERS Safety Report 13973593 (Version 6)
Quarter: 2020Q1

REPORT INFORMATION
  Report Type: Spontaneous
  Country: JP (occurrence: JP)
  Receive Date: 20170915
  Receipt Date: 20200327
  Transmission Date: 20200409
  Serious: Yes (Hospitalization, Other)
  Sender: FDA-Public Use
  Company Number: JP-PFIZER INC-2017392849

PATIENT
  Age: 62 Year
  Sex: Male
  Weight: 55 kg

DRUGS (14)
  1. INLYTA [Suspect]
     Active Substance: AXITINIB
     Dosage: 6 MG, 2X/DAY
     Route: 048
     Dates: start: 20140526, end: 20140612
  2. INLYTA [Suspect]
     Active Substance: AXITINIB
     Dosage: 3 MG, 2X/DAY
     Route: 048
     Dates: start: 20130415, end: 20140514
  3. BIOFERMIN [BIFIDOBACTERIUM NOS] [Concomitant]
     Dosage: 1 DF, 3X/DAY
     Route: 048
  4. AVAPRO [Concomitant]
     Active Substance: IRBESARTAN
     Dosage: 200 MG, 1X/DAY
     Route: 048
  5. INLYTA [Suspect]
     Active Substance: AXITINIB
     Dosage: 14 MG, 1X/DAY
     Dates: start: 201512
  6. INLYTA [Suspect]
     Active Substance: AXITINIB
     Indication: METASTATIC RENAL CELL CARCINOMA
     Dosage: 5 MG, 2X/DAY
     Route: 048
     Dates: start: 20130128, end: 20130414
  7. SORAFENIB [Concomitant]
     Active Substance: SORAFENIB
     Indication: NEOPLASM PROGRESSION
     Dosage: 800 MG, 1X/DAY
  8. SORAFENIB [Concomitant]
     Active Substance: SORAFENIB
     Dosage: 400 MG, 1X/DAY
     Dates: start: 201103
  9. INLYTA [Suspect]
     Active Substance: AXITINIB
     Dosage: 4 MG, 2X/DAY
     Route: 048
     Dates: start: 20140515, end: 20140518
  10. DENOTAS [Concomitant]
     Active Substance: CALCIUM CARBONATE\CHOLECALCIFEROL\MAGNESIUM CARBONATE
     Dosage: 2 DF, 1X/DAY
     Route: 048
  11. CALBLOCK [Concomitant]
     Active Substance: AZELNIDIPINE
     Dosage: 8 MG, 1X/DAY
     Route: 048
  12. INLYTA [Suspect]
     Active Substance: AXITINIB
     Dosage: 5 MG, 2X/DAY
     Route: 048
     Dates: start: 20140519, end: 20140525
  13. INLYTA [Suspect]
     Active Substance: AXITINIB
     Dosage: 5 MG, 2X/DAY
     Route: 048
     Dates: start: 20140613, end: 20170427
  14. THYRADIN [Concomitant]
     Active Substance: LEVOTHYROXINE
     Dosage: 50 UG, 1X/DAY
     Route: 048

REACTIONS (9)
  - Cardiomyopathy [Unknown]
  - Neoplasm progression [Unknown]
  - Cardiac dysfunction [Unknown]
  - Hypertension [Not Recovered/Not Resolved]
  - Back pain [Unknown]
  - Proteinuria [Unknown]
  - Palpitations [Unknown]
  - Aortic dissection [Recovering/Resolving]
  - Fatigue [Unknown]

NARRATIVE: CASE EVENT DATE: 201304
